FAERS Safety Report 9809521 (Version 2)
Quarter: 2014Q1

REPORT INFORMATION
  Report Type: Spontaneous
  Country: US (occurrence: US)
  Receive Date: 20140110
  Receipt Date: 20140110
  Transmission Date: 20141002
  Serious: Yes (Hospitalization)
  Sender: FDA-Public Use
  Company Number: US-SANOFI-AVENTIS-2012SA003441

PATIENT
  Age: 78 Year
  Sex: Female
  Weight: 77 kg

DRUGS (24)
  1. PLAVIX [Suspect]
     Indication: ACUTE CORONARY SYNDROME
     Route: 048
     Dates: start: 200701, end: 20111223
  2. ASPIRIN [Suspect]
     Indication: ACUTE CORONARY SYNDROME
     Route: 048
     Dates: start: 2009, end: 20111223
  3. OTAMIXABAN [Suspect]
     Indication: ACUTE CORONARY SYNDROME
     Route: 042
     Dates: start: 20111222, end: 20111222
  4. LOVENOX [Concomitant]
     Route: 058
     Dates: start: 20111221, end: 20111221
  5. VYTORIN [Concomitant]
     Dates: start: 2011
  6. UNKNOWDRUG [Concomitant]
     Dates: start: 2011
  7. LOPRESSOR [Concomitant]
     Dates: start: 2006
  8. VERAPAMIL [Concomitant]
     Dates: start: 2009
  9. IMDUR [Concomitant]
     Dates: start: 2010
  10. K-DUR [Concomitant]
     Dates: start: 20111222, end: 20111222
  11. ATROPINE [Concomitant]
     Dates: start: 20111222, end: 20111222
  12. FENTANYL [Concomitant]
     Dates: start: 20111222, end: 20111222
  13. VERSED [Concomitant]
     Dates: start: 20111222, end: 20111222
  14. XYLOCAINE [Concomitant]
     Dates: start: 20111222, end: 20111222
  15. ISOVUE [Concomitant]
     Dates: start: 20111222, end: 20111222
  16. HYDROMORPHONE [Concomitant]
     Dates: start: 20111222, end: 20111222
  17. ZOFRAN [Concomitant]
     Dates: start: 20111222, end: 20111222
  18. PROMETHAZINE [Concomitant]
     Dates: start: 20111222, end: 20111222
  19. NORCO [Concomitant]
     Dates: start: 20111222, end: 20111222
  20. DUONEB [Concomitant]
     Dates: start: 2008
  21. LUMIGAN [Concomitant]
     Dates: start: 2008
  22. ALPHAGAN [Concomitant]
     Dates: start: 2008
  23. NEXIUM [Concomitant]
     Dates: start: 2009
  24. PROTONIX [Concomitant]
     Dates: start: 20111222

REACTIONS (1)
  - Vascular pseudoaneurysm [Recovered/Resolved]
